FAERS Safety Report 5113209-9 (Version None)
Quarter: 2006Q3

REPORT INFORMATION
  Report Type: 
  Country: None (occurrence: None)
  Receive Date: 20060920
  Receipt Date: 20060901
  Transmission Date: 20061208
  Serious: Yes (Death)
  Sender: FDA-Public Use
  Company Number: US200609001157

PATIENT
  Age: 70 Year
  Sex: Male
  Weight: 83.4 kg

DRUGS (5)
  1. ZYPREXA [Suspect]
     Dosage: 5 MG; 10 MG
     Dates: start: 20000501, end: 20000701
  2. ZYPREXA [Suspect]
     Dosage: 5 MG; 10 MG
     Dates: start: 20000701, end: 20021201
  3. RISPERIDONE [Concomitant]
  4. PAROXETINE [Concomitant]
  5. SERTRALINE [Concomitant]

REACTIONS (1)
  - DIABETES MELLITUS [None]
